FAERS Safety Report 24625479 (Version 3)
Quarter: 2024Q4

REPORT INFORMATION
  Report Type: Spontaneous
  Country: US (occurrence: US)
  Receive Date: 20241115
  Receipt Date: 20241231
  Transmission Date: 20250115
  Serious: No
  Sender: ABBVIE
  Company Number: US-ABBVIE-5997355

PATIENT
  Sex: Male

DRUGS (1)
  1. LUPRON DEPOT [Suspect]
     Active Substance: LEUPROLIDE ACETATE
     Indication: Prostate cancer stage IV
     Dosage: DOSE TEXT: UNKNOWN?FREQUENCY TEXT: UNKNOWN?STOP DATE TEXT: UNKNOWN
     Route: 065
     Dates: start: 2016

REACTIONS (1)
  - Off label use [Unknown]
